FAERS Safety Report 4994405-8 (Version None)
Quarter: 2006Q2

REPORT INFORMATION
  Report Type: 
  Country: None (occurrence: None)
  Receive Date: 20060503
  Receipt Date: 20060420
  Transmission Date: 20061013
  Serious: Yes (Life-Threatening, Hospitalization, Other)
  Sender: FDA-Public Use
  Company Number: 2006055892

PATIENT
  Sex: Male
  Weight: 127.0072 kg

DRUGS (11)
  1. NEURONTIN [Suspect]
     Indication: NEURALGIA
     Dosage: (800 MG), ORAL
     Route: 048
     Dates: start: 20020101
  2. ISOSORBIDE (ISOSORBIDE) [Suspect]
     Indication: CARDIAC DISORDER
     Dosage: 1600 MG (800 MG, 2 IN 1 D), ORAL
     Route: 048
  3. GABAPENTIN [Suspect]
     Indication: NEURALGIA
  4. GABAPENTIN [Suspect]
     Indication: NEUROPATHY
  5. COZAAR [Suspect]
     Indication: CARDIAC DISORDER
  6. OXCARBAZEPINE [Suspect]
     Indication: ILL-DEFINED DISORDER
  7. LIPITOR [Concomitant]
  8. DONEPEZIL HCL [Concomitant]
  9. LEVOTHYROXINE SODIUM [Concomitant]
  10. PRAMIPEXOLE (PRAMIPEXOLE) [Concomitant]
  11. ALL OTHER THERAPEUTIC PRODUCTS (ALL OTHER THERAPEUTIC PRODUCTS) [Concomitant]

REACTIONS (4)
  - COMA [None]
  - DRUG INEFFECTIVE [None]
  - NEURALGIA [None]
  - SOMNOLENCE [None]
